FAERS Safety Report 7415977-X (Version None)
Quarter: 2011Q2

REPORT INFORMATION
  Report Type: 
  Country: None (occurrence: None)
  Receive Date: 20110414
  Receipt Date: 20100217
  Transmission Date: 20111010
  Serious: Yes (Hospitalization)
  Sender: FDA-Public Use
  Company Number: PHHY2010DE90844

PATIENT

DRUGS (1)
  1. EXTAVIA [Suspect]
     Indication: MULTIPLE SCLEROSIS

REACTIONS (3)
  - HEAD INJURY [None]
  - GENERAL PHYSICAL HEALTH DETERIORATION [None]
  - TRAUMATIC BRAIN INJURY [None]
